FAERS Safety Report 5075673-3 (Version None)
Quarter: 2006Q3

REPORT INFORMATION
  Report Type: 
  Country: None (occurrence: None)
  Receive Date: 20060809
  Receipt Date: 20060725
  Transmission Date: 20061208
  Serious: No
  Sender: FDA-Public Use
  Company Number: 2006UW15069

PATIENT
  Age: 47 Year
  Sex: Male
  Weight: 115.7 kg

DRUGS (7)
  1. SEROQUEL [Suspect]
     Indication: BIPOLAR DISORDER
     Route: 048
     Dates: start: 20010101
  2. SEROQUEL [Suspect]
     Route: 048
  3. LAMICTAL [Concomitant]
  4. KLONOPIN [Concomitant]
  5. SPIRIVA [Concomitant]
  6. ADVAIR DISKUS 100/50 [Concomitant]
  7. LITHIUM [Concomitant]

REACTIONS (11)
  - CHRONIC OBSTRUCTIVE PULMONARY DISEASE [None]
  - DIARRHOEA [None]
  - DRUG WITHDRAWAL SYNDROME [None]
  - INCREASED APPETITE [None]
  - MUSCLE TWITCHING [None]
  - NAUSEA [None]
  - OXYGEN SATURATION DECREASED [None]
  - POLYCYTHAEMIA [None]
  - RESPIRATORY DISORDER [None]
  - VOMITING [None]
  - WEIGHT INCREASED [None]
